FAERS Safety Report 14298235 (Version 1)
Quarter: 2017Q4

REPORT INFORMATION
  Report Type: Spontaneous
  Country: US (occurrence: US)
  Receive Date: 20171215
  Receipt Date: 20171215
  Transmission Date: 20180321
  Serious: No
  Sender: FDA-Public Use
  Company Number: None

PATIENT
  Sex: Female

DRUGS (6)
  1. MULTIVITAMIN [Concomitant]
     Active Substance: VITAMINS
  2. FEMARA [Concomitant]
     Active Substance: LETROZOLE
  3. IBRANCE [Suspect]
     Active Substance: PALBOCICLIB
     Indication: NEOPLASM MALIGNANT
     Route: 048
     Dates: start: 20171021
  4. TRAMADOL. [Concomitant]
     Active Substance: TRAMADOL
  5. CALCIUM [Concomitant]
     Active Substance: CALCIUM
  6. TYLENOL [Concomitant]
     Active Substance: ACETAMINOPHEN

REACTIONS (5)
  - Stomatitis [None]
  - Dry skin [None]
  - Pain [None]
  - Fatigue [None]
  - Dry mouth [None]
